FAERS Safety Report 20143532 (Version 1)
Quarter: 2021Q4

REPORT INFORMATION
  Report Type: Report from Study
  Country: DE (occurrence: DE)
  Receive Date: 20211203
  Receipt Date: 20211203
  Transmission Date: 20220303
  Serious: Yes (Hospitalization)
  Sender: FDA-Public Use
  Company Number: DE-SUN PHARMACEUTICAL INDUSTRIES LTD-2021RR-297969

PATIENT
  Age: 94 Year
  Sex: Female

DRUGS (10)
  1. SONIDEGIB [Suspect]
     Active Substance: SONIDEGIB
     Indication: Basal cell carcinoma
     Dosage: 200 MILLIGRAM, DAILY
     Route: 048
     Dates: start: 20201012, end: 20210402
  2. Eliquise [Concomitant]
     Indication: Pre-existing disease
     Dosage: 5 MILLIGRAM, DAILY
     Route: 048
     Dates: start: 201905
  3. DIGITOXIN [Concomitant]
     Active Substance: DIGITOXIN
     Indication: Pre-existing disease
     Dosage: 0.5 MILLIGRAM, DAILY
     Route: 048
     Dates: start: 201905
  4. Lisinorpil [Concomitant]
     Indication: Pre-existing disease
     Dosage: UNK, DAILY
     Route: 048
  5. LERCANIDIPINE [Concomitant]
     Active Substance: LERCANIDIPINE
     Indication: Pre-existing disease
     Dosage: 10 MILLIGRAM, BID
     Route: 048
  6. TORSEMIDE [Concomitant]
     Active Substance: TORSEMIDE
     Indication: Pre-existing disease
     Dosage: 10 MILLIGRAM, BID
     Route: 048
     Dates: start: 201902
  7. Novamisulfon [Concomitant]
     Indication: Pre-existing disease
     Dosage: 500 MILLIGRAM, QID
     Route: 048
     Dates: start: 202007
  8. Tiidinhydrochlorid [Concomitant]
     Indication: Pre-existing disease
     Dosage: 100 MILLIGRAM, BID
     Route: 048
     Dates: start: 202007
  9. PREGABALIN [Concomitant]
     Active Substance: PREGABALIN
     Indication: Pre-existing disease
     Dosage: 50 MILLIGRAM, BID
     Route: 048
     Dates: start: 202007
  10. MIRTAZAPINE [Concomitant]
     Active Substance: MIRTAZAPINE
     Indication: Pre-existing disease
     Dosage: 7.5 MILLIGRAM, DAILY
     Route: 048
     Dates: start: 202008

REACTIONS (1)
  - Cardiac failure [Recovered/Resolved]

NARRATIVE: CASE EVENT DATE: 20210503
